FAERS Safety Report 13120587 (Version 1)
Quarter: 2017Q1

REPORT INFORMATION
  Report Type: Spontaneous
  Country: US (occurrence: US)
  Receive Date: 20170113
  Receipt Date: 20170113
  Transmission Date: 20170509
  Serious: Yes (Hospitalization, Other)
  Sender: FDA-Public Use
  Company Number: None

PATIENT
  Age: 65 Year
  Sex: Female
  Weight: 98.4 kg

DRUGS (1)
  1. VANCOMYCIN [Suspect]
     Active Substance: VANCOMYCIN
     Indication: INFLAMMATION
     Route: 042

REACTIONS (3)
  - Erythema [None]
  - Rash pruritic [None]
  - Middle insomnia [None]

NARRATIVE: CASE EVENT DATE: 20170110
